FAERS Safety Report 11857178 (Version 2)
Quarter: 2016Q1

REPORT INFORMATION
  Report Type: Spontaneous
  Country: US (occurrence: US)
  Receive Date: 20151221
  Receipt Date: 20160307
  Transmission Date: 20160526
  Serious: Yes (Hospitalization, Disabling, Other)
  Sender: FDA-Public Use
  Company Number: US-PFIZER INC-2015458394

PATIENT
  Sex: Male

DRUGS (2)
  1. DEPO-TESTOSTERONE [Suspect]
     Active Substance: TESTOSTERONE CYPIONATE
     Indication: HORMONE REPLACEMENT THERAPY
     Dosage: UNK
     Dates: start: 20071105, end: 20071221
  2. DEPO-TESTOSTERONE [Suspect]
     Active Substance: TESTOSTERONE CYPIONATE
     Indication: LIBIDO DECREASED
     Dosage: 3 INJECTIONS IN 2 WEEKS
     Dates: start: 200712, end: 200712

REACTIONS (9)
  - Activities of daily living impaired [Not Recovered/Not Resolved]
  - Depression [Unknown]
  - Dyspnoea [Not Recovered/Not Resolved]
  - Anxiety [Unknown]
  - Silent myocardial infarction [Unknown]
  - Thrombosis [Unknown]
  - Asthenia [Unknown]
  - Cardiac failure congestive [Unknown]
  - Heart rate irregular [Unknown]
